FAERS Safety Report 5288459-1 (Version None)
Quarter: 2007Q2

REPORT INFORMATION
  Report Type: 
  Country: None (occurrence: None)
  Receive Date: 20070405
  Receipt Date: 20070329
  Transmission Date: 20071010
  Serious: Yes (Other)
  Sender: FDA-Public Use
  Company Number: US-ROCHE-481074

PATIENT
  Age: 57 Year
  Sex: Female
  Weight: 67.6 kg

DRUGS (6)
  1. PEG-INTERFERON A-2A (RO 25-8310) [Suspect]
     Route: 058
     Dates: start: 20061104, end: 20070314
  2. RIBAVIRIN [Suspect]
     Route: 048
     Dates: start: 20061104, end: 20070314
  3. ZOLOFT [Concomitant]
  4. BENADRYL [Concomitant]
     Dates: start: 20060905
  5. KLONOPIN [Concomitant]
     Dates: start: 20060809
  6. NEXIUM [Concomitant]

REACTIONS (4)
  - ARTERIOSCLEROSIS [None]
  - CEREBRAL ATROPHY [None]
  - FACIAL PALSY [None]
  - SINUSITIS [None]
